FAERS Safety Report 9538965 (Version 1)
Quarter: 2013Q3

REPORT INFORMATION
  Report Type: Spontaneous
  Country: US (occurrence: US)
  Receive Date: 20130920
  Receipt Date: 20130920
  Transmission Date: 20140515
  Serious: Yes (Hospitalization)
  Sender: FDA-Public Use
  Company Number: US-ASTELLAS-2013US009728

PATIENT
  Sex: Female

DRUGS (5)
  1. PROGRAF [Suspect]
     Indication: RENAL TRANSPLANT
     Dosage: 3 MG IN AM, 4 MG IN PM
     Route: 048
     Dates: start: 20040301
  2. CELLCEPT                           /01275102/ [Concomitant]
     Indication: RENAL TRANSPLANT
     Dosage: 500 MG, BID
     Route: 048
     Dates: start: 20030308
  3. PREDNISONE [Concomitant]
     Indication: RENAL TRANSPLANT
     Dosage: 5 MG, UID/QD
     Route: 048
     Dates: start: 20030308
  4. METOPROLOL [Concomitant]
     Indication: HYPERTENSION
     Dosage: 25 MG, UID/QD
     Route: 048
     Dates: start: 20110601
  5. ZANTAC [Concomitant]
     Indication: DYSPEPSIA
     Dosage: 75 MG, UID/QD
     Route: 048

REACTIONS (5)
  - Renal disorder [Recovered/Resolved]
  - Viral infection [Recovered/Resolved]
  - Vomiting [Recovered/Resolved]
  - Diarrhoea [Recovered/Resolved]
  - Dehydration [Recovered/Resolved]
